FAERS Safety Report 24154373 (Version 1)
Quarter: 2024Q3

REPORT INFORMATION
  Report Type: Report from Study
  Country: GR (occurrence: GR)
  Receive Date: 20240731
  Receipt Date: 20240731
  Transmission Date: 20241016
  Serious: Yes (Life-Threatening, Hospitalization, Other)
  Sender: ABBVIE
  Company Number: GR-ABBVIE-5858811

PATIENT
  Age: 72 Year
  Sex: Male
  Weight: 70 kg

DRUGS (13)
  1. VENETOCLAX [Suspect]
     Active Substance: VENETOCLAX
     Indication: Acute myeloid leukaemia
     Route: 048
     Dates: start: 20221026, end: 20231125
  2. ENTECAVIR [Concomitant]
     Active Substance: ENTECAVIR
     Indication: Antiviral prophylaxis
     Dosage: UNIT DOSE: 0.5 MG
     Route: 048
     Dates: start: 20220801
  3. VFEND [Concomitant]
     Active Substance: VORICONAZOLE
     Indication: Respiratory tract infection
     Dosage: UNIT DOSE: 300 OF UNSPECIFIED UNITS
     Route: 042
     Dates: start: 20231125, end: 20231217
  4. AVELOX [Concomitant]
     Active Substance: MOXIFLOXACIN HYDROCHLORIDE
     Indication: Pneumonitis
     Dosage: UNIT DOSE: 400 OF UNSPECIFIED UNITS
     Route: 042
     Dates: start: 20231129, end: 20231208
  5. Ezetimib atorvastatin sandoz [Concomitant]
     Indication: Coronary artery disease
     Dosage: UNIT DOSE: 10 MG AND 20 MG
     Route: 048
  6. NOXAFIL [Concomitant]
     Active Substance: POSACONAZOLE
     Indication: Antifungal prophylaxis
     Route: 048
     Dates: start: 20220801
  7. PIPERACILLIN SODIUM\TAZOBACTAM SODIUM [Concomitant]
     Active Substance: PIPERACILLIN SODIUM\TAZOBACTAM SODIUM
     Indication: Pneumonitis
     Dosage: UNIT DOSE: 4.5 OF UNSPECIFIED UNITS
     Route: 042
     Dates: start: 20231125, end: 20231210
  8. TARGOCID [Concomitant]
     Active Substance: TEICOPLANIN
     Indication: Pneumonitis
     Dosage: UNIT DOSE: 400 OF UNSPECIFIED UNITS
     Route: 042
     Dates: start: 20231125, end: 20231213
  9. SULFAMETHOXAZOLE AND TRIMETHOPRIM [Concomitant]
     Active Substance: SULFAMETHOXAZOLE\TRIMETHOPRIM
     Indication: Antifungal prophylaxis
     Dosage: UNIT DOSE: 800 MG AND 160 MG?FREQUENCY TEXT: 2 DAILY, 3 DAYS WEEKLY
     Route: 048
     Dates: start: 20220801
  10. METFORMIN [Concomitant]
     Active Substance: METFORMIN HYDROCHLORIDE
     Indication: Diabetes mellitus
     Route: 048
  11. ASPIRIN [Concomitant]
     Active Substance: ASPIRIN
     Indication: Coronary artery disease
     Route: 048
  12. VALTREX [Concomitant]
     Active Substance: VALACYCLOVIR HYDROCHLORIDE
     Indication: Antiviral prophylaxis
     Route: 048
     Dates: start: 20220801
  13. METOPROLOL [Concomitant]
     Active Substance: METOPROLOL
     Indication: Coronary artery disease
     Route: 030

REACTIONS (8)
  - Respiratory tract infection [Recovered/Resolved]
  - Pyrexia [Recovered/Resolved]
  - Oxygen saturation abnormal [Recovering/Resolving]
  - Dyspnoea [Unknown]
  - Breath sounds abnormal [Unknown]
  - Cough [Unknown]
  - Pneumonitis [Unknown]
  - Tachypnoea [Unknown]

NARRATIVE: CASE EVENT DATE: 20231125
